FAERS Safety Report 6289916-1 (Version None)
Quarter: 2009Q3

REPORT INFORMATION
  Report Type: 
  Country: None (occurrence: None)
  Receive Date: 20090730
  Receipt Date: 20080916
  Transmission Date: 20100115
  Serious: No
  Sender: FDA-Public Use
  Company Number: US-BRISTOL-MYERS SQUIBB COMPANY-14337851

PATIENT

DRUGS (1)
  1. COUMADIN [Suspect]
     Dosage: 1 DOSAGEFORM = 7.5 TO 10MG

REACTIONS (3)
  - BLOOD IRON ABNORMAL [None]
  - BLOOD THYROID STIMULATING HORMONE DECREASED [None]
  - MEAN CELL VOLUME INCREASED [None]
